FAERS Safety Report 13767821 (Version 1)
Quarter: 2017Q3

REPORT INFORMATION
  Report Type: Spontaneous
  Country: US (occurrence: US)
  Receive Date: 20170719
  Receipt Date: 20170719
  Transmission Date: 20171127
  Serious: Yes (Death, Hospitalization)
  Sender: FDA-Public Use
  Company Number: US-PFIZER INC-2017309108

PATIENT
  Age: 69 Year
  Sex: Male
  Weight: 104 kg

DRUGS (3)
  1. RITUXAN [Concomitant]
     Active Substance: RITUXIMAB
     Indication: VASCULITIS
     Dosage: UNK, CYCLIC (EVERY 6 MONTHS)
  2. XALKORI [Suspect]
     Active Substance: CRIZOTINIB
     Indication: LUNG NEOPLASM MALIGNANT
     Dosage: 250 MG, 2X/DAY
     Route: 048
     Dates: start: 20170602, end: 20170605
  3. MAGNESIUM [Concomitant]
     Active Substance: MAGNESIUM

REACTIONS (2)
  - Dysphagia [Unknown]
  - Dyspnoea [Fatal]

NARRATIVE: CASE EVENT DATE: 20170605
